FAERS Safety Report 23159257 (Version 1)
Quarter: 2023Q4

REPORT INFORMATION
  Report Type: Spontaneous
  Country: US (occurrence: None)
  Receive Date: 20231107
  Receipt Date: 20231107
  Transmission Date: 20240110
  Serious: Yes (Hospitalization)
  Sender: FDA-Public Use
  Company Number: None

PATIENT
  Age: 69 Year
  Sex: Female
  Weight: 61 kg

DRUGS (1)
  1. ABECMA [Suspect]
     Active Substance: IDECABTAGENE VICLEUCEL
     Indication: Plasma cell myeloma
     Dosage: OTHER FREQUENCY : ONCE;?
     Route: 042
     Dates: start: 20230920, end: 20230920

REACTIONS (8)
  - Lymphocyte adoptive therapy [None]
  - Cytokine release syndrome [None]
  - Culture urine positive [None]
  - Staphylococcal infection [None]
  - Bacterial disease carrier [None]
  - Complication associated with device [None]
  - Paraproteinaemia [None]
  - Pseudohyponatraemia [None]

NARRATIVE: CASE EVENT DATE: 20230921
